FAERS Safety Report 17255320 (Version 2)
Quarter: 2020Q1

REPORT INFORMATION
  Report Type: Spontaneous
  Country: US (occurrence: US)
  Receive Date: 20200110
  Receipt Date: 20200224
  Transmission Date: 20200409
  Serious: No
  Sender: FDA-Public Use
  Company Number: US-009507513-1912USA010204

PATIENT
  Age: 14 Year
  Sex: Female
  Weight: 50 kg

DRUGS (2)
  1. REMERON [Suspect]
     Active Substance: MIRTAZAPINE
     Indication: AUTISM SPECTRUM DISORDER
     Dosage: 15 MG ONCE DAILY
     Route: 048
  2. RISPERIDONE. [Concomitant]
     Active Substance: RISPERIDONE
     Dosage: 1 MG TWICE DAILY

REACTIONS (1)
  - Product use in unapproved indication [Unknown]
